FAERS Safety Report 5196323-1 (Version None)
Quarter: 2006Q4

REPORT INFORMATION
  Report Type: 
  Country: None (occurrence: None)
  Receive Date: 20061222
  Receipt Date: 20061213
  Transmission Date: 20070319
  Serious: Yes (Other)
  Sender: FDA-Public Use
  Company Number: 2006139224

PATIENT
  Age: 80 Year
  Sex: Female

DRUGS (5)
  1. SILDENAFIL CITRATE [Suspect]
     Indication: PULMONARY HYPERTENSION
     Dosage: 75 MG (25 MG, 3 IN 1 D), ORAL
     Route: 048
     Dates: start: 20051010
  2. MARCUMAR [Concomitant]
  3. ALL OTHER THERAPEUTIC PRODUCTS (ALL OTHER THERAPEUTIC PRODUCTS) [Concomitant]
  4. AMARYL [Concomitant]
  5. ALLOPUR (ALLOPURINOL) [Concomitant]

REACTIONS (3)
  - BLOOD GLUCOSE INCREASED [None]
  - GENERALISED OEDEMA [None]
  - PRURITUS [None]
